FAERS Safety Report 9496921 (Version 2)
Quarter: 2014Q1

REPORT INFORMATION
  Report Type: Spontaneous
  Country: US (occurrence: US)
  Receive Date: 20130904
  Receipt Date: 20140318
  Transmission Date: 20141002
  Serious: Yes (Hospitalization, Other)
  Sender: FDA-Public Use
  Company Number: US-BAYER-2013-105294

PATIENT
  Age: 40 Year
  Sex: Female
  Weight: 61.22 kg

DRUGS (1)
  1. MIRENA [Suspect]
     Indication: CONTRACEPTION
     Dosage: 20 MCG/24HR, CONT
     Route: 015
     Dates: start: 20061102, end: 20120618

REACTIONS (7)
  - Uterine perforation [None]
  - Vaginal haemorrhage [None]
  - Device dislocation [None]
  - Medical device pain [None]
  - Injury [None]
  - Infection [None]
  - Device misuse [None]
